FAERS Safety Report 4628166-9 (Version None)
Quarter: 2005Q2

REPORT INFORMATION
  Report Type: 
  Country: None (occurrence: None)
  Receive Date: 20050401
  Receipt Date: 20050317
  Transmission Date: 20051028
  Serious: Yes (Hospitalization)
  Sender: FDA-Public Use
  Company Number: 2005-BP-04434BR

PATIENT
  Age: 68 Year
  Sex: Female

DRUGS (2)
  1. ATROVENT [Suspect]
     Dosage: 0.375/0.5 MG (0.25 MG, 30 TO 40 DROPS) PO
     Route: 048
     Dates: start: 20050306, end: 20050313
  2. TENADREN [Suspect]
     Dosage: 40 MG, PO
     Route: 048

REACTIONS (5)
  - ABDOMINAL DISTENSION [None]
  - ABDOMINAL PAIN [None]
  - CONSTIPATION [None]
  - MEDICATION ERROR [None]
  - PANCREAS INFECTION [None]
